FAERS Safety Report 10763230 (Version 1)
Quarter: 2015Q1

REPORT INFORMATION
  Report Type: Spontaneous
  Country: US (occurrence: None)
  Receive Date: 20150128
  Receipt Date: 20150128
  Transmission Date: 20150721
  Serious: Yes (Other)
  Sender: FDA-Public Use
  Company Number: 1344215

PATIENT
  Age: 81 Year
  Sex: Female

DRUGS (1)
  1. RITUXAN [Suspect]
     Active Substance: RITUXIMAB
     Indication: B-CELL LYMPHOMA
     Dosage: 1 IN 3 M?(NOT OTHERWISE SPECIFIED)
     Route: 042
     Dates: start: 2009

REACTIONS (5)
  - Lymphadenopathy [None]
  - Loss of consciousness [None]
  - Splenomegaly [None]
  - Tremor [None]
  - Alopecia [None]

NARRATIVE: CASE EVENT DATE: 2009
